FAERS Safety Report 9099340 (Version 3)
Quarter: 2014Q1

REPORT INFORMATION
  Report Type: Spontaneous
  Country: FR (occurrence: FR)
  Receive Date: 20130214
  Receipt Date: 20140107
  Transmission Date: 20141002
  Serious: Yes (Hospitalization)
  Sender: FDA-Public Use
  Company Number: FR-NICOBRDEVP-2013-02543

PATIENT
  Age: 84 Year
  Sex: Male

DRUGS (8)
  1. SERTRALINE [Suspect]
     Indication: DELIRIUM
     Dosage: 25 MG, DAILY
     Route: 048
     Dates: start: 20111215, end: 20111215
  2. PAROXETINE [Suspect]
     Indication: DEPRESSION
     Dosage: 20 MG, DAILY
     Route: 048
     Dates: start: 201110, end: 20111205
  3. LEPONEX [Suspect]
     Indication: DEMENTIA WITH LEWY BODIES
     Dosage: 12.5 MG, DAILY
     Route: 048
     Dates: start: 20111124, end: 20111125
  4. GUTRON [Suspect]
     Indication: ORTHOSTATIC HYPOTENSION
     Dosage: 1 DF, BID
     Route: 048
     Dates: start: 20111204
  5. EXELON /01383201/ [Suspect]
     Indication: PRODUCT USED FOR UNKNOWN INDICATION
     Dosage: 1 DF, DAILY
     Route: 062
     Dates: start: 20111207, end: 20111220
  6. AMLODIPINE [Concomitant]
     Indication: PRODUCT USED FOR UNKNOWN INDICATION
     Dosage: 5 MG, UNK
  7. KARDEGIC [Concomitant]
     Indication: PRODUCT USED FOR UNKNOWN INDICATION
  8. MODOPAR [Concomitant]
     Indication: PRODUCT USED FOR UNKNOWN INDICATION
     Dosage: 5 DF, DAILY

REACTIONS (3)
  - Bradycardia [Recovered/Resolved]
  - Loss of consciousness [Recovered/Resolved]
  - Hypotension [Recovered/Resolved]
